FAERS Safety Report 7797564-7 (Version None)
Quarter: 2011Q3

REPORT INFORMATION
  Report Type: 
  Country: None (occurrence: None)
  Receive Date: 20110927
  Receipt Date: 20110921
  Transmission Date: 20111222
  Serious: Yes (Death)
  Sender: FDA-Public Use
  Company Number: 2011029854

PATIENT
  Age: 70 Year
  Sex: Male

DRUGS (8)
  1. TARIVID /00731801/ (OFLOXACIN) INDICATION FOR USE WAS RESPIRATORY INFE [Suspect]
     Indication: CHRONIC LYMPHOCYTIC LEUKAEMIA
     Dosage: SEE IMAGE
     Route: 042
     Dates: start: 20110815
  2. TARIVID /00731801/ (OFLOXACIN) INDICATION FOR USE WAS RESPIRATORY INFE [Suspect]
     Indication: CHRONIC LYMPHOCYTIC LEUKAEMIA
     Dosage: SEE IMAGE
     Route: 042
     Dates: start: 20110120, end: 20110120
  3. TARIVID /00731801/ (OFLOXACIN) INDICATION FOR USE WAS RESPIRATORY INFE [Suspect]
     Indication: CHRONIC LYMPHOCYTIC LEUKAEMIA
     Dosage: SEE IMAGE
     Route: 042
     Dates: start: 20110421, end: 20110421
  4. TARIVID /00731801/ (OFLOXACIN) INDICATION FOR USE WAS RESPIRATORY INFE [Suspect]
     Indication: CHRONIC LYMPHOCYTIC LEUKAEMIA
     Dosage: SEE IMAGE
     Route: 042
     Dates: start: 20110526, end: 20110526
  5. TARIVID /00731801/ (OFLOXACIN) INDICATION FOR USE WAS RESPIRATORY INFE [Suspect]
     Indication: CHRONIC LYMPHOCYTIC LEUKAEMIA
     Dosage: SEE IMAGE
     Route: 042
     Dates: start: 20101026, end: 20110406
  6. TARIVID /00731801/ (OFLOXACIN) INDICATION FOR USE WAS RESPIRATORY INFE [Suspect]
     Indication: CHRONIC LYMPHOCYTIC LEUKAEMIA
     Dosage: SEE IMAGE
     Route: 042
     Dates: start: 20110624, end: 20110624
  7. TARIVID /00731801/ (OFLOXACIN) INDICATION FOR USE WAS RESPIRATORY INFE [Suspect]
     Indication: CHRONIC LYMPHOCYTIC LEUKAEMIA
     Dosage: SEE IMAGE
     Route: 042
     Dates: start: 20110303, end: 20110303
  8. TARIVID /00731801/ (OFLOXACIN) [Concomitant]

REACTIONS (5)
  - RESPIRATORY FAILURE [None]
  - SEPSIS [None]
  - HEPATITIS C [None]
  - PYREXIA [None]
  - PNEUMONIA [None]
